FAERS Safety Report 20002120 (Version 2)
Quarter: 2021Q4

REPORT INFORMATION
  Report Type: Spontaneous
  Country: US (occurrence: US)
  Receive Date: 20211027
  Receipt Date: 20211102
  Transmission Date: 20220303
  Serious: Yes (Hospitalization, Other)
  Sender: FDA-Public Use
  Company Number: US-MLMSERVICE-20211008-3151192-1

PATIENT
  Age: 66 Year
  Sex: Female
  Weight: 89.4 kg

DRUGS (5)
  1. VERAPAMIL HCL [Interacting]
     Active Substance: VERAPAMIL HYDROCHLORIDE
     Indication: Atrial fibrillation
     Dosage: FREQ:12 H;EXTENDED-RELEASE
     Route: 048
  2. VERAPAMIL HCL [Interacting]
     Active Substance: VERAPAMIL HYDROCHLORIDE
     Dosage: 240 MG, 1X/DAY
     Route: 048
  3. METOPROLOL SUCCINATE [Interacting]
     Active Substance: METOPROLOL SUCCINATE
     Indication: Atrial fibrillation
     Dosage: FREQ:24 H;50 MG PO IN THE MORNING AND 25 MG AT BEDTIME
     Route: 048
  4. METOPROLOL SUCCINATE [Interacting]
     Active Substance: METOPROLOL SUCCINATE
     Dosage: FREQ:24 H;50 MG PO IN THE MORNING AND 25 MG AT BEDTIME
     Route: 048
  5. SPIRONOLACTONE [Concomitant]
     Active Substance: SPIRONOLACTONE
     Dosage: 50 MG, CYCLIC(ONCE EVERY 24 HOURS)
     Route: 048

REACTIONS (4)
  - Presyncope [Recovered/Resolved]
  - Herbal interaction [Recovered/Resolved]
  - Hypotension [Recovered/Resolved]
  - Bradycardia [Recovered/Resolved]
